FAERS Safety Report 9071933 (Version 3)
Quarter: 2013Q4

REPORT INFORMATION
  Report Type: Spontaneous
  Country: CA (occurrence: CA)
  Receive Date: 20130129
  Receipt Date: 20131030
  Transmission Date: 20140711
  Serious: Yes (Hospitalization)
  Sender: FDA-Public Use
  Company Number: CA-ROCHE-1184900

PATIENT
  Age: 71 Year
  Sex: Female

DRUGS (4)
  1. XOLAIR [Suspect]
     Indication: ASTHMA
     Route: 058
     Dates: start: 20121017
  2. SYMBICORT [Concomitant]
  3. SPIRIVA [Concomitant]
  4. VENTOLIN [Concomitant]

REACTIONS (8)
  - Asthma [Recovered/Resolved]
  - Somnolence [Unknown]
  - Fatigue [Unknown]
  - General physical condition abnormal [Unknown]
  - Upper respiratory tract infection [Recovered/Resolved]
  - Back pain [Recovered/Resolved]
  - Immunodeficiency [Not Recovered/Not Resolved]
  - Weight increased [Not Recovered/Not Resolved]
